FAERS Safety Report 18535228 (Version 1)
Quarter: 2020Q4

REPORT INFORMATION
  Report Type: Spontaneous
  Country: US (occurrence: US)
  Receive Date: 20201123
  Receipt Date: 20201123
  Transmission Date: 20210114
  Serious: No
  Sender: FDA-Public Use
  Company Number: US-BRISTOL-MYERS SQUIBB COMPANY-BMS-2020-096161

PATIENT
  Age: 63 Year
  Sex: Female

DRUGS (3)
  1. OPDIVO [Suspect]
     Active Substance: NIVOLUMAB
     Dosage: UNK, QMO
     Route: 065
     Dates: start: 20201008
  2. OPDIVO [Suspect]
     Active Substance: NIVOLUMAB
     Indication: PRODUCT USED FOR UNKNOWN INDICATION
     Dosage: UNK, QMO
     Route: 065
     Dates: start: 2016
  3. RECLAST [Concomitant]
     Active Substance: ZOLEDRONIC ACID
     Indication: BONE DISORDER
     Dosage: YEARLY
     Route: 065
     Dates: start: 20201008

REACTIONS (7)
  - Peripheral swelling [Unknown]
  - Headache [Unknown]
  - Joint swelling [Unknown]
  - Tinnitus [Unknown]
  - Pain [Unknown]
  - Pain in extremity [Unknown]
  - Hepatic lesion [Unknown]

NARRATIVE: CASE EVENT DATE: 202010
